FAERS Safety Report 4379494-6 (Version None)
Quarter: 2004Q2

REPORT INFORMATION
  Report Type: 
  Country: None (occurrence: None)
  Receive Date: 20040614
  Receipt Date: 20040607
  Transmission Date: 20050107
  Serious: Yes (Hospitalization)
  Sender: FDA-Public Use
  Company Number: K200400859

PATIENT
  Sex: Female

DRUGS (2)
  1. LEVOXYL [Suspect]
     Dosage: ORAL
     Route: 048
     Dates: start: 20030616
  2. VITAMIN B12 (CYANOCABALAMIN) [Concomitant]

REACTIONS (4)
  - ANAEMIA [None]
  - ASTHENIA [None]
  - COLD SWEAT [None]
  - PALLOR [None]
